FAERS Safety Report 20153138 (Version 1)
Quarter: 2021Q4

REPORT INFORMATION
  Report Type: Report from Study
  Country: DE (occurrence: None)
  Receive Date: 20211206
  Receipt Date: 20211206
  Transmission Date: 20220303
  Serious: Yes (Other)
  Sender: FDA-Public Use
  Company Number: DE-Merck Healthcare KGaA-9283880

PATIENT
  Age: 14 Year
  Sex: Male

DRUGS (2)
  1. SAIZEN [Suspect]
     Active Substance: SOMATROPIN
     Indication: Growth hormone deficiency
     Route: 058
     Dates: start: 20130812, end: 2020
  2. SAIZEN [Suspect]
     Active Substance: SOMATROPIN
     Route: 058
     Dates: start: 2021

REACTIONS (1)
  - Renal neoplasm [Recovered/Resolved]

NARRATIVE: CASE EVENT DATE: 20200601
